FAERS Safety Report 9129586 (Version 1)
Quarter: 2013Q1

REPORT INFORMATION
  Report Type: Report from Study
  Country: US (occurrence: US)
  Receive Date: 20130228
  Receipt Date: 20130228
  Transmission Date: 20140127
  Serious: Yes (Hospitalization, Other)
  Sender: FDA-Public Use
  Company Number: US-ABBOTT-13P-163-1052049-00

PATIENT
  Age: 52 None
  Sex: Female
  Weight: 99.43 kg

DRUGS (7)
  1. HUMIRA PEN [Suspect]
     Indication: CROHN^S DISEASE
     Route: 058
     Dates: start: 201201, end: 201201
  2. HUMIRA PEN [Suspect]
     Route: 058
     Dates: start: 201202, end: 201202
  3. HUMIRA PEN [Suspect]
     Route: 058
     Dates: start: 201202
  4. IMURAN [Concomitant]
     Indication: CROHN^S DISEASE
  5. LYRICA [Concomitant]
     Indication: FIBROMYALGIA
  6. ANTI-INFLAMMATORY [Concomitant]
     Indication: OSTEOARTHRITIS
  7. EFFEXOR XR [Concomitant]
     Indication: DEPRESSION

REACTIONS (4)
  - Umbilical hernia [Recovered/Resolved]
  - Abdominal adhesions [Recovering/Resolving]
  - Tendon injury [Recovered/Resolved]
  - Osteoarthritis [Unknown]
